FAERS Safety Report 8038348-4 (Version None)
Quarter: 2012Q1

REPORT INFORMATION
  Report Type: 
  Country: None (occurrence: None)
  Receive Date: 20120111
  Receipt Date: 20111205
  Transmission Date: 20120608
  Serious: No
  Sender: FDA-Public Use
  Company Number: US-AMGEN-USASP2011045521

PATIENT
  Age: 59 Year
  Sex: Male

DRUGS (2)
  1. ENBREL [Suspect]
     Indication: PSORIATIC ARTHROPATHY
     Dosage: 50 MG, QWK
     Dates: start: 20110728
  2. ENBREL [Suspect]
     Dosage: UNK

REACTIONS (9)
  - INJECTION SITE PAIN [None]
  - SKIN TIGHTNESS [None]
  - INJECTION SITE REACTION [None]
  - ERYTHEMA [None]
  - PAPULE [None]
  - PRURITUS [None]
  - INJECTION SITE SWELLING [None]
  - INJECTION SITE MASS [None]
  - MUSCULOSKELETAL PAIN [None]
